FAERS Safety Report 8198974-9 (Version None)
Quarter: 2012Q1

REPORT INFORMATION
  Report Type: 
  Country: None (occurrence: None)
  Receive Date: 20120309
  Receipt Date: 20120302
  Transmission Date: 20120608
  Serious: Yes (Hospitalization)
  Sender: FDA-Public Use
  Company Number: US-EISAI INC-E3810-05358-SPO-US

PATIENT
  Sex: Female
  Weight: 58 kg

DRUGS (2)
  1. ACIPHEX [Suspect]
     Dosage: UNKNOWN
     Route: 048
     Dates: start: 20110501, end: 20110101
  2. ANTIHYPERTENSIVES [Suspect]
     Indication: BLOOD PRESSURE
     Route: 065

REACTIONS (2)
  - HIP SURGERY [None]
  - DRUG INEFFECTIVE [None]
